FAERS Safety Report 9077189 (Version 1)
Quarter: 2013Q1

REPORT INFORMATION
  Report Type: Report from Study
  Country: US (occurrence: US)
  Receive Date: 20130130
  Receipt Date: 20130130
  Transmission Date: 20140127
  Serious: No
  Sender: FDA-Public Use
  Company Number: US-ABBOTT-12P-163-0954423-00

PATIENT
  Age: 73 Year
  Sex: Female

DRUGS (17)
  1. HUMIRA 40 MG/0.8 ML PEN [Suspect]
     Indication: PSORIASIS
     Dates: start: 20120403
  2. UNKNOWN BUG SPRAY [Suspect]
     Indication: INFECTION PROPHYLAXIS
  3. PAROXETINE [Concomitant]
     Indication: DRUG THERAPY
  4. LEVOTHYROXINE [Concomitant]
     Indication: THYROID DISORDER
  5. NYSTATIN [Concomitant]
     Indication: FUNGAL INFECTION
     Dosage: UP TO 3 TIMES DAILY
  6. OYST-CAL [Concomitant]
     Indication: PRODUCT USED FOR UNKNOWN INDICATION
  7. LISINOPRIL [Concomitant]
     Indication: HYPERTENSION
  8. METFORMIN [Concomitant]
     Indication: DIABETES MELLITUS
  9. FUROSEMIDE [Concomitant]
     Indication: DIURETIC THERAPY
  10. FAMOTIDINE [Concomitant]
     Indication: GASTROOESOPHAGEAL REFLUX DISEASE
  11. SINGULAR [Concomitant]
     Indication: ASTHMA
     Dosage: AT BEDTIME
  12. ADVAIR [Concomitant]
     Indication: ASTHMA
     Dosage: 500/50 DISK TWICE A DAY
  13. XOPENEX [Concomitant]
     Indication: ASTHMA
     Dosage: TWICE DAILY AS NEEDED
  14. POTASSIUM [Concomitant]
     Indication: PRODUCT USED FOR UNKNOWN INDICATION
  15. BETAMETHASONE [Concomitant]
     Indication: PSORIASIS
  16. CALCIUM/VITAMIN D [Concomitant]
     Indication: PRODUCT USED FOR UNKNOWN INDICATION
     Dosage: 1200MG = 2 600MG TABS DAILY
  17. CLOBETASOL [Concomitant]
     Indication: PSORIASIS

REACTIONS (4)
  - Acarodermatitis [Not Recovered/Not Resolved]
  - Rash [Not Recovered/Not Resolved]
  - Rash pruritic [Not Recovered/Not Resolved]
  - Rash erythematous [Not Recovered/Not Resolved]
